FAERS Safety Report 7914472-9 (Version None)
Quarter: 2011Q4

REPORT INFORMATION
  Report Type: 
  Country: None (occurrence: None)
  Receive Date: 20111115
  Receipt Date: 20090129
  Transmission Date: 20120403
  Serious: Yes (Other)
  Sender: FDA-Public Use
  Company Number: HU-ASTRAZENECA-2009AC00470

PATIENT
  Sex: Male

DRUGS (1)
  1. PROPOFOL [Suspect]
     Indication: TENSION HEADACHE
     Dosage: INJECTED 3-4 TIMES PER WEEK, LASTING 1-2 HOURS

REACTIONS (4)
  - LOSS OF CONSCIOUSNESS [None]
  - DRUG DEPENDENCE [None]
  - ACCIDENTAL OVERDOSE [None]
  - CYANOSIS [None]
